FAERS Safety Report 4956251-0 (Version None)
Quarter: 2006Q1

REPORT INFORMATION
  Report Type: 
  Country: None (occurrence: None)
  Receive Date: 20060329
  Receipt Date: 20060316
  Transmission Date: 20060701
  Serious: Yes (Other)
  Sender: FDA-Public Use
  Company Number: DE-JNJFOC-20060304565

PATIENT
  Age: 60 Year
  Sex: Female

DRUGS (13)
  1. HALDOL [Suspect]
     Indication: DRUG USE FOR UNKNOWN INDICATION
     Route: 048
  2. HALOPERIDOL DECANOATE [Suspect]
     Indication: DRUG USE FOR UNKNOWN INDICATION
     Dosage: SINCE 3 WEEKS
     Route: 065
  3. RISPERDAL [Suspect]
     Indication: DRUG USE FOR UNKNOWN INDICATION
     Route: 065
  4. EUGLUAN [Concomitant]
  5. METFORMIN [Concomitant]
     Indication: DIABETES MELLITUS
  6. DELIX [Concomitant]
  7. ALLOPURINOL [Concomitant]
  8. CARMEN [Concomitant]
  9. ZINC [Concomitant]
  10. TAVOR [Concomitant]
  11. AKINETON [Concomitant]
  12. KARDIOHERMAL [Concomitant]
  13. LEFAX [Concomitant]

REACTIONS (3)
  - HYPERHIDROSIS [None]
  - INAPPROPRIATE ANTIDIURETIC HORMONE SECRETION [None]
  - SOMNOLENCE [None]
